FAERS Safety Report 19846919 (Version 1)
Quarter: 2021Q3

REPORT INFORMATION
  Report Type: Spontaneous
  Country: US (occurrence: US)
  Receive Date: 20210917
  Receipt Date: 20210917
  Transmission Date: 20211014
  Serious: Yes (Other)
  Sender: FDA-Public Use
  Company Number: None

PATIENT
  Age: 41 Year
  Sex: Female
  Weight: 63 kg

DRUGS (5)
  1. KEPPRA [Concomitant]
     Active Substance: LEVETIRACETAM
  2. TYLENOL [Concomitant]
     Active Substance: ACETAMINOPHEN
  3. DEXTROAMPHET SACCHARAT, AMPHET ASPARTATE, DEXTROAMPHET SULFATE AND AMPHET SULFAT [Suspect]
     Active Substance: AMPHETAMINE ASPARTATE\AMPHETAMINE SULFATE\DEXTROAMPHETAMINE SACCHARATE\DEXTROAMPHETAMINE SULFATE
     Indication: NARCOLEPSY
     Dosage: ?          QUANTITY:1 TABLET(S);?
     Route: 048
     Dates: start: 20210808, end: 20210810
  4. ATIVAN [Concomitant]
     Active Substance: LORAZEPAM
  5. TIZANIDINE. [Concomitant]
     Active Substance: TIZANIDINE

REACTIONS (7)
  - Muscle spasms [None]
  - Musculoskeletal stiffness [None]
  - Eye pain [None]
  - Temporomandibular joint syndrome [None]
  - Facial pain [None]
  - Ocular discomfort [None]
  - Neck pain [None]

NARRATIVE: CASE EVENT DATE: 20210809
